FAERS Safety Report 5240595-1 (Version None)
Quarter: 2007Q1

REPORT INFORMATION
  Report Type: 
  Country: None (occurrence: None)
  Receive Date: 20061208
  Receipt Date: 20050325
  Transmission Date: 20070707
  Serious: Yes (Other)
  Sender: FDA-Public Use
  Company Number: 2005UW04727

PATIENT
  Sex: Female
  Weight: 63.502 kg

DRUGS (5)
  1. CRESTOR [Suspect]
     Indication: BLOOD CHOLESTEROL INCREASED
     Dosage: 5 MG QD PO
     Route: 048
     Dates: start: 20050105
  2. PLAVIX [Suspect]
     Dates: start: 20050105, end: 20050115
  3. SYNTHROID [Concomitant]
  4. PREVACID [Concomitant]
  5. COUMADIN [Concomitant]

REACTIONS (1)
  - EYELASH DISCOLOURATION [None]
